FAERS Safety Report 6576586-8 (Version None)
Quarter: 2010Q1

REPORT INFORMATION
  Report Type: 
  Country: None (occurrence: None)
  Receive Date: 20100210
  Receipt Date: 20100128
  Transmission Date: 20100710
  Serious: Yes (Other)
  Sender: FDA-Public Use
  Company Number: PHHY2010VE05365

PATIENT

DRUGS (1)
  1. ACLASTA [Suspect]
     Dosage: 5 MG
     Dates: start: 20081101

REACTIONS (3)
  - BODY TEMPERATURE DECREASED [None]
  - HYPOTENSION [None]
  - SYNCOPE [None]
